FAERS Safety Report 5162982-2 (Version None)
Quarter: 2006Q4

REPORT INFORMATION
  Report Type: 
  Country: None (occurrence: None)
  Receive Date: 20061201
  Receipt Date: 20061120
  Transmission Date: 20070319
  Serious: Yes (Other)
  Sender: FDA-Public Use
  Company Number: DE-ELI_LILLY_AND_COMPANY-DE200611004362

PATIENT
  Age: 29 Year
  Sex: Female

DRUGS (2)
  1. YENTREVE [Suspect]
     Indication: STRESS URINARY INCONTINENCE
     Dosage: 20 MG, DAILY (1/D)
     Route: 048
     Dates: start: 20061024, end: 20061109
  2. YENTREVE [Suspect]
     Dosage: 40 MG, EACH EVENING
     Route: 048
     Dates: start: 20061110

REACTIONS (2)
  - CARDIOVASCULAR DISORDER [None]
  - CIRCULATORY COLLAPSE [None]
